FAERS Safety Report 6558485-0 (Version None)
Quarter: 2010Q1

REPORT INFORMATION
  Report Type: 
  Country: None (occurrence: None)
  Receive Date: 20100129
  Receipt Date: 20100121
  Transmission Date: 20100710
  Serious: Yes (Hospitalization)
  Sender: FDA-Public Use
  Company Number: GXKR2010IT01128

PATIENT
  Sex: Female

DRUGS (5)
  1. BISOPROLOL SANDOZ (NGX) [Suspect]
     Indication: MYOCARDIAL ISCHAEMIA
     Dosage: 2.5 MG/DAY
     Route: 048
  2. ADALAT [Suspect]
     Indication: ESSENTIAL HYPERTENSION
     Dosage: 20 MG/DAY
     Route: 048
  3. TOTALIP [Suspect]
     Indication: MYOCARDIAL ISCHAEMIA
     Dosage: 10 MG/DAY
     Route: 048
  4. LANSOPRAZOLE [Concomitant]
     Indication: GASTROINTESTINAL ULCER
     Dosage: 15 MG, UNK
  5. LASIX [Concomitant]
     Indication: MYOCARDIAL ISCHAEMIA
     Dosage: 25 MG, UNK
     Route: 048

REACTIONS (1)
  - ACUTE GENERALISED EXANTHEMATOUS PUSTULOSIS [None]
